FAERS Safety Report 4581911-3 (Version None)
Quarter: 2005Q1

REPORT INFORMATION
  Report Type: 
  Country: None (occurrence: None)
  Receive Date: 20050214
  Receipt Date: 20040402
  Transmission Date: 20050727
  Serious: No
  Sender: FDA-Public Use
  Company Number: US-GLAXOSMITHKLINE-A0505683A

PATIENT
  Age: 56 Year
  Sex: Female

DRUGS (21)
  1. LAMICTAL [Suspect]
     Indication: DEPRESSION
     Dosage: 50MG PER DAY
     Route: 048
     Dates: start: 20040301
  2. VIOXX [Concomitant]
  3. VICODIN [Concomitant]
  4. MONOPRIL [Concomitant]
  5. ULTRACET [Concomitant]
  6. ZOMIG [Concomitant]
  7. NEURONTIN [Concomitant]
  8. NEXIUM [Concomitant]
  9. ATENOLOL [Concomitant]
  10. SYNTHROID [Concomitant]
  11. LIPITOR [Concomitant]
  12. DETROL [Concomitant]
  13. ELMIRON [Concomitant]
  14. ELAVIL [Concomitant]
  15. DDAVP [Concomitant]
  16. XALATAN [Concomitant]
  17. NORVASC [Concomitant]
  18. SEROQUEL [Concomitant]
  19. POTASSIUM CHLORIDE [Concomitant]
  20. LASIX [Concomitant]
  21. CORTISONE SHOT [Concomitant]

REACTIONS (1)
  - URTICARIA [None]
